FAERS Safety Report 14222032 (Version 1)
Quarter: 2017Q4

REPORT INFORMATION
  Report Type: Report from Study
  Country: None (occurrence: CA)
  Receive Date: 20171124
  Receipt Date: 20171124
  Transmission Date: 20180321
  Serious: Yes (Life-Threatening, Hospitalization, Other)
  Sender: FDA-Public Use
  Company Number: CA-ABBVIE-17K-028-2170000-00

PATIENT
  Age: 71 Year
  Sex: Female

DRUGS (1)
  1. HUMIRA [Suspect]
     Active Substance: ADALIMUMAB
     Indication: RHEUMATOID ARTHRITIS
     Route: 058
     Dates: start: 20161107, end: 2017

REACTIONS (4)
  - Delirium [Recovered/Resolved]
  - Oxygen saturation decreased [Recovered/Resolved]
  - Renal failure [Recovered/Resolved]
  - Pneumonia [Recovered/Resolved]

NARRATIVE: CASE EVENT DATE: 201707
